FAERS Safety Report 13178199 (Version 2)
Quarter: 2017Q2

REPORT INFORMATION
  Report Type: Spontaneous
  Country: DE (occurrence: DE)
  Receive Date: 20170202
  Receipt Date: 20170508
  Transmission Date: 20170830
  Serious: Yes (Other)
  Sender: FDA-Public Use
  Company Number: DE-009507513-1702DEU000553

PATIENT
  Age: 57 Year
  Sex: Male
  Weight: 96 kg

DRUGS (6)
  1. RAMIPRIL. [Concomitant]
     Active Substance: RAMIPRIL
     Dosage: 5 MG, TWICE A DAY
     Dates: start: 2004
  2. LERCANIDIPINE [Concomitant]
     Active Substance: LERCANIDIPINE
     Dosage: 20 MG, DAILY
     Dates: start: 201601
  3. BRILIQUE [Concomitant]
     Active Substance: TICAGRELOR
     Dosage: 90 MG,TWICE A DAY
     Dates: start: 201601, end: 201701
  4. ATOZET 10 MG/40 MG [Suspect]
     Active Substance: ATORVASTATIN CALCIUM\EZETIMIBE
     Indication: HYPERCHOLESTEROLAEMIA
     Dosage: UNK STRENGTH: 10MG/40MG
     Route: 048
     Dates: start: 20161007, end: 20170120
  5. BISOPROLOL [Concomitant]
     Active Substance: BISOPROLOL
     Dosage: 2.5 MG, DAILY
     Dates: start: 201601
  6. ASPIRIN. [Concomitant]
     Active Substance: ASPIRIN
     Dosage: 100 MG, QD
     Dates: start: 201601

REACTIONS (4)
  - Bradycardia [Recovered/Resolved]
  - Tension [Unknown]
  - Heart rate decreased [Unknown]
  - Malaise [Unknown]

NARRATIVE: CASE EVENT DATE: 201611
